FAERS Safety Report 19932760 (Version 1)
Quarter: 2021Q4

REPORT INFORMATION
  Report Type: Spontaneous
  Country: US (occurrence: US)
  Receive Date: 20211007
  Receipt Date: 20211007
  Transmission Date: 20220303
  Serious: Yes (Life-Threatening)
  Sender: FDA-Public Use
  Company Number: None

PATIENT
  Age: 57 Year
  Sex: Female
  Weight: 76.5 kg

DRUGS (1)
  1. FLUOXETINE [Suspect]
     Active Substance: FLUOXETINE HYDROCHLORIDE
     Indication: Depression
     Route: 048
     Dates: start: 20210510, end: 20210630

REACTIONS (6)
  - Lupus-like syndrome [None]
  - Chromaturia [None]
  - Gastrointestinal inflammation [None]
  - Constipation [None]
  - Antiphospholipid syndrome [None]
  - Product complaint [None]

NARRATIVE: CASE EVENT DATE: 20210805
